FAERS Safety Report 9254624 (Version 7)
Quarter: 2014Q1

REPORT INFORMATION
  Report Type: Spontaneous
  Country: US (occurrence: US)
  Receive Date: 20130425
  Receipt Date: 20140312
  Transmission Date: 20141002
  Serious: Yes (Hospitalization, Other)
  Sender: FDA-Public Use
  Company Number: US-009507513-1304USA013895

PATIENT
  Sex: Female
  Weight: 58.96 kg

DRUGS (7)
  1. FOSAMAX [Suspect]
     Indication: OSTEOPOROSIS
     Dosage: 10 MG, UNK
     Route: 048
     Dates: start: 20011123, end: 20080417
  2. FOSAMAX [Suspect]
     Dosage: 70 MG, QW
     Route: 048
     Dates: start: 20011123, end: 20080417
  3. FOSAMAX [Suspect]
     Dosage: UNK
     Route: 048
     Dates: start: 1999
  4. ALENDRONATE SODIUM [Suspect]
     Indication: OSTEOPOROSIS
     Dosage: 10 MG, UNK
     Route: 048
     Dates: start: 20080418, end: 20110207
  5. ALENDRONATE SODIUM [Suspect]
     Dosage: 70 MG, QW
     Route: 048
     Dates: start: 20080418, end: 20110207
  6. URSODIOL [Concomitant]
     Indication: BILIARY CIRRHOSIS PRIMARY
     Dosage: UNK
     Dates: start: 20010104
  7. LEVOTHYROXINE SODIUM [Concomitant]
     Indication: HYPOTHYROIDISM
     Dosage: UNK
     Dates: start: 19951204

REACTIONS (35)
  - Femur fracture [Unknown]
  - Intramedullary rod insertion [Unknown]
  - Incision site infection [Unknown]
  - Debridement [Unknown]
  - Thyroidectomy [Unknown]
  - External fixation of fracture [Unknown]
  - Dehydration [Unknown]
  - Radius fracture [Unknown]
  - Fluid retention [Unknown]
  - Blood potassium decreased [Unknown]
  - Motion sickness [Unknown]
  - Bacterial infection [Unknown]
  - Osteoarthritis [Unknown]
  - Infection [Unknown]
  - Urinary tract infection [Unknown]
  - Low turnover osteopathy [Unknown]
  - Asthma [Unknown]
  - Osteopenia [Unknown]
  - Hepatitis B [Unknown]
  - Rib deformity [Unknown]
  - Pancreatic insufficiency [Unknown]
  - Breast calcifications [Unknown]
  - Sleep disorder [Unknown]
  - Oesophageal varices haemorrhage [Unknown]
  - Gastric varices [Unknown]
  - Fibroadenoma of breast [Unknown]
  - Dystrophic calcification [Unknown]
  - Fibrocystic breast disease [Unknown]
  - Hepatic cirrhosis [Unknown]
  - Platelet count decreased [Unknown]
  - Constipation [Unknown]
  - Dizziness [Unknown]
  - Rash [Unknown]
  - Drug hypersensitivity [Unknown]
  - Gastrooesophageal reflux disease [Unknown]
